FAERS Safety Report 9363914 (Version 2)
Quarter: 2013Q3

REPORT INFORMATION
  Report Type: Spontaneous
  Country: US (occurrence: US)
  Receive Date: 20130624
  Receipt Date: 20130711
  Transmission Date: 20140515
  Serious: Yes (Disabling)
  Sender: FDA-Public Use
  Company Number: US-PFIZER INC-2013186656

PATIENT
  Age: 52 Year
  Sex: Male
  Weight: 86 kg

DRUGS (5)
  1. EFFEXOR [Suspect]
     Indication: DEPRESSION
     Dosage: UNK
     Dates: end: 2013
  2. METFORMIN [Concomitant]
     Dosage: UNK
  3. IBUPROFEN [Concomitant]
     Dosage: UNK
  4. SEROQUEL [Concomitant]
     Dosage: UNK
  5. TRAZODONE [Concomitant]
     Dosage: UNK

REACTIONS (2)
  - Mental disorder [Unknown]
  - Glycosylated haemoglobin increased [Unknown]
